FAERS Safety Report 20018186 (Version 1)
Quarter: 2021Q4

REPORT INFORMATION
  Report Type: Other
  Country: CO (occurrence: None)
  Receive Date: 20211101
  Receipt Date: 20211101
  Transmission Date: 20220303
  Serious: Yes (Other)
  Sender: FDA-Public Use
  Company Number: CO-ROCHE-2946863

PATIENT

DRUGS (8)
  1. VEMURAFENIB [Suspect]
     Active Substance: VEMURAFENIB
     Indication: Metastatic malignant melanoma
     Route: 065
  2. COBIMETINIB [Suspect]
     Active Substance: COBIMETINIB
     Indication: Metastatic malignant melanoma
     Route: 065
  3. DABRAFENIB [Suspect]
     Active Substance: DABRAFENIB
     Indication: Metastatic malignant melanoma
     Route: 065
  4. TRAMETINIB [Suspect]
     Active Substance: TRAMETINIB
     Indication: Metastatic malignant melanoma
     Route: 065
  5. IPILIMUMAB [Suspect]
     Active Substance: IPILIMUMAB
     Indication: Metastatic malignant melanoma
     Route: 065
  6. NIVOLUMAB [Suspect]
     Active Substance: NIVOLUMAB
     Indication: Metastatic malignant melanoma
     Route: 065
  7. PEMBROLIZUMAB [Suspect]
     Active Substance: PEMBROLIZUMAB
     Indication: Metastatic malignant melanoma
     Route: 065
  8. DACARBAZINE [Suspect]
     Active Substance: DACARBAZINE
     Indication: Metastatic malignant melanoma
     Route: 065

REACTIONS (17)
  - Squamous cell carcinoma [Unknown]
  - Basal cell carcinoma [Unknown]
  - Alanine aminotransferase increased [Unknown]
  - Blood alkaline phosphatase increased [Unknown]
  - Arthralgia [Unknown]
  - Aspartate aminotransferase increased [Unknown]
  - Blood creatine phosphokinase [Unknown]
  - Colitis [Unknown]
  - Diarrhoea [Unknown]
  - Ejection fraction decreased [Unknown]
  - Fatigue [Unknown]
  - Hypertension [Unknown]
  - Lipase increased [Unknown]
  - Photosensitivity reaction [Unknown]
  - Pyrexia [Unknown]
  - Rash [Unknown]
  - Gamma-glutamyltransferase increased [Unknown]
